FAERS Safety Report 15222150 (Version 1)
Quarter: 2018Q3

REPORT INFORMATION
  Report Type: Spontaneous
  Country: FR (occurrence: FR)
  Receive Date: 20180731
  Receipt Date: 20180731
  Transmission Date: 20181010
  Serious: Yes (Disabling)
  Sender: FDA-Public Use
  Company Number: FR-INTERCEPT-PMOCA2018001185

PATIENT

DRUGS (3)
  1. OCALIVA [Suspect]
     Active Substance: OBETICHOLIC ACID
     Indication: PRIMARY BILIARY CHOLANGITIS
     Dosage: 5 MG, QOD
     Route: 048
     Dates: start: 20171122, end: 20180117
  2. BEZAFIBRATE [Concomitant]
     Active Substance: BEZAFIBRATE
     Dosage: 400 UNK, QD
     Dates: start: 2015
  3. DELURSAN [Concomitant]
     Active Substance: URSODIOL
     Dosage: 500 UNK, TID
     Dates: start: 2003

REACTIONS (2)
  - General physical health deterioration [Recovered/Resolved]
  - Asthenia [Recovered/Resolved]
